FAERS Safety Report 5825582-4 (Version None)
Quarter: 2008Q3

REPORT INFORMATION
  Report Type: 
  Country: None (occurrence: None)
  Receive Date: 20080723
  Receipt Date: 20080621
  Transmission Date: 20090109
  Serious: Yes (Other)
  Sender: FDA-Public Use
  Company Number: DSU-2007-00957

PATIENT
  Age: 52 Year
  Sex: Female

DRUGS (2)
  1. BENICAR [Suspect]
     Indication: BLOOD PRESSURE
     Dosage: PER ORAL
     Route: 048
  2. UNSPECIFIED OVE THE COUNTER MEDICATION (ALL OTHER THERAPEUTIC PRODUCTS [Suspect]
     Indication: DRUG USE FOR UNKNOWN INDICATION

REACTIONS (3)
  - BLOOD GLUCOSE INCREASED [None]
  - CHEST PAIN [None]
  - VISUAL IMPAIRMENT [None]
